FAERS Safety Report 9440460 (Version 2)
Quarter: 2013Q4

REPORT INFORMATION
  Report Type: Spontaneous
  Country: GB (occurrence: GB)
  Receive Date: 20130805
  Receipt Date: 20131120
  Transmission Date: 20140711
  Serious: Yes (Congenital Anomaly)
  Sender: FDA-Public Use
  Company Number: PHHY2013GB080517

PATIENT
  Sex: Female

DRUGS (2)
  1. GABAPENTIN [Suspect]
     Indication: DIABETIC NEPHROPATHY
     Route: 064
  2. INSULIN [Concomitant]

REACTIONS (4)
  - Caudal regression syndrome [Unknown]
  - Brain malformation [Unknown]
  - Limb deformity [Unknown]
  - Congenital anomaly [Unknown]
